FAERS Safety Report 8710395 (Version 2)
Quarter: 2013Q4

REPORT INFORMATION
  Report Type: Spontaneous
  Country: US (occurrence: US)
  Receive Date: 20120807
  Receipt Date: 20131101
  Transmission Date: 20140711
  Serious: Yes (Hospitalization)
  Sender: FDA-Public Use
  Company Number: US-009507513-1208USA001726

PATIENT
  Age: 27 Year
  Sex: Female

DRUGS (6)
  1. PRIMAXIN I.V. [Suspect]
     Indication: ENDOCARDITIS BACTERIAL
     Dosage: UNK
     Route: 042
  2. GENTAMICIN [Suspect]
     Indication: ENDOCARDITIS BACTERIAL
     Dosage: UNK, QD
  3. CEFTRIAXONE SODIUM [Concomitant]
  4. METRONIDAZOLE [Concomitant]
  5. DOXYCYCLINE [Concomitant]
  6. CIPROFLOXACIN [Concomitant]

REACTIONS (1)
  - Drug ineffective [Recovering/Resolving]
